FAERS Safety Report 8122028-0 (Version None)
Quarter: 2011Q4

REPORT INFORMATION
  Report Type: 
  Country: None (occurrence: None)
  Receive Date: 20111227
  Receipt Date: 20111006
  Transmission Date: 20120403
  Serious: No
  Sender: FDA-Public Use
  Company Number: PHEH2011US06292

PATIENT
  Age: 46 Year
  Sex: Female

DRUGS (2)
  1. CHANTIX [Suspect]
  2. GILENYA [Suspect]
     Dosage: 0.5 MG, QD, ORAL
     Route: 048
     Dates: start: 20110927

REACTIONS (4)
  - MALAISE [None]
  - ASTHENIA [None]
  - ABDOMINAL DISCOMFORT [None]
  - DIZZINESS [None]
